FAERS Safety Report 5248047-X (Version None)
Quarter: 2007Q1

REPORT INFORMATION
  Report Type: 
  Country: None (occurrence: None)
  Receive Date: 20070222
  Receipt Date: 20070208
  Transmission Date: 20070707
  Serious: Yes (Hospitalization)
  Sender: FDA-Public Use
  Company Number: 2007PV000004

PATIENT
  Age: 53 Year
  Sex: Female

DRUGS (6)
  1. DEPOCYT [Suspect]
     Indication: ACUTE MYELOID LEUKAEMIA
     Dosage: 50 MG;QOW;INTH
     Route: 037
     Dates: start: 20061031, end: 20061212
  2. LYRICA [Concomitant]
  3. FOLIC ACID [Concomitant]
  4. FAMVIR [Concomitant]
  5. URSODIOL [Concomitant]
  6. LEVOTHYROXINE SODIUM [Concomitant]

REACTIONS (2)
  - PYREXIA [None]
  - RASH GENERALISED [None]
